FAERS Safety Report 25499651 (Version 1)
Quarter: 2025Q2

REPORT INFORMATION
  Report Type: Spontaneous
  Country: US (occurrence: None)
  Receive Date: 20250629
  Receipt Date: 20250629
  Transmission Date: 20250716
  Serious: Yes (Life-Threatening, Other)
  Sender: FDA-CTU
  Company Number: None

PATIENT
  Age: 40 Year
  Sex: Female
  Weight: 65.25 kg

DRUGS (7)
  1. KENALOG [Suspect]
     Active Substance: TRIAMCINOLONE ACETONIDE
     Indication: Intercostal neuralgia
     Dates: start: 20250416, end: 20250521
  2. KENALOG [Suspect]
     Active Substance: TRIAMCINOLONE ACETONIDE
     Indication: Slipping rib syndrome
  3. MIDODRINE [Concomitant]
     Active Substance: MIDODRINE
  4. BUPROPION [Concomitant]
     Active Substance: BUPROPION
  5. BACLOFEN [Concomitant]
     Active Substance: BACLOFEN
  6. DOCUSATE SODIUM [Concomitant]
     Active Substance: DOCUSATE SODIUM
  7. IBUPROFEN [Concomitant]
     Active Substance: IBUPROFEN

REACTIONS (12)
  - Blood glucose fluctuation [None]
  - Malaise [None]
  - Menstruation delayed [None]
  - Heavy menstrual bleeding [None]
  - Heart rate irregular [None]
  - Urticaria [None]
  - Tachycardia [None]
  - Circulatory collapse [None]
  - Hypotension [None]
  - Chest pain [None]
  - Dizziness [None]
  - Type IV hypersensitivity reaction [None]

NARRATIVE: CASE EVENT DATE: 20250525
